FAERS Safety Report 14995623 (Version 2)
Quarter: 2018Q2

REPORT INFORMATION
  Report Type: Spontaneous
  Country: JP (occurrence: JP)
  Receive Date: 20180611
  Receipt Date: 20180622
  Transmission Date: 20180711
  Serious: Yes (Death, Life-Threatening, Other)
  Sender: FDA-Public Use
  Company Number: JP-ELI_LILLY_AND_COMPANY-JP201804013815

PATIENT
  Age: 70 Year
  Sex: Female
  Weight: 47 kg

DRUGS (2)
  1. ERBITUX [Suspect]
     Active Substance: CETUXIMAB
     Indication: TONGUE CARCINOMA STAGE 0
     Dosage: 551.2 MG, WEEKLY (1/W)
     Route: 041
     Dates: start: 20180228, end: 20180228
  2. ERBITUX [Suspect]
     Active Substance: CETUXIMAB
     Dosage: 344.5 MG, WEEKLY (1/W)
     Route: 041
     Dates: start: 20180307, end: 20180412

REACTIONS (2)
  - Pneumothorax [Unknown]
  - Interstitial lung disease [Fatal]

NARRATIVE: CASE EVENT DATE: 20180414
